FAERS Safety Report 8369842-4 (Version None)
Quarter: 2012Q2

REPORT INFORMATION
  Report Type: 
  Country: None (occurrence: None)
  Receive Date: 20120518
  Receipt Date: 20120510
  Transmission Date: 20120825
  Serious: Yes (Other)
  Sender: FDA-Public Use
  Company Number: US-PFIZER INC-US-WYE-H11674109

PATIENT
  Sex: Male

DRUGS (18)
  1. PAROXETINE [Suspect]
     Dosage: UNK
  2. TRAZODONE [Suspect]
     Dosage: UNK
  3. WELLBUTRIN [Suspect]
     Dosage: UNK
  4. PAXIL [Suspect]
     Dosage: UNK
  5. DEPAKOTE [Suspect]
     Dosage: UNK
  6. FISH OIL, HYDROGENATED [Concomitant]
  7. EFFEXOR XR [Suspect]
     Indication: DEPRESSION
     Dosage: 75 MG, 1X/DAY
     Route: 048
     Dates: start: 19930101
  8. PRISTIQ [Suspect]
     Dosage: HALF A TABLET
     Route: 048
     Dates: start: 20090301, end: 20090323
  9. ZOLOFT [Suspect]
     Dosage: UNK
  10. MIRTAZAPINE [Suspect]
     Dosage: UNK
  11. ZYPREXA [Suspect]
     Dosage: UNK
  12. CYMBALTA [Suspect]
     Dosage: UNK
  13. PROZAC [Suspect]
     Dosage: UNK
  14. ONE-A-DAY [Concomitant]
  15. PRISTIQ [Suspect]
     Indication: DEPRESSION
     Dosage: 50 MG, 1X/DAY
     Route: 048
     Dates: start: 20090316, end: 20090301
  16. DOXEPIN HCL [Suspect]
     Dosage: UNK
  17. SEROQUEL [Suspect]
     Dosage: UNK
  18. LEXAPRO [Suspect]
     Dosage: UNK

REACTIONS (13)
  - NIGHTMARE [None]
  - AGEUSIA [None]
  - DRY MOUTH [None]
  - DIARRHOEA [None]
  - DRUG INEFFECTIVE [None]
  - DRUG EFFECT DECREASED [None]
  - DECREASED APPETITE [None]
  - MUSCLE TWITCHING [None]
  - SUICIDE ATTEMPT [None]
  - SUICIDAL IDEATION [None]
  - TREMOR [None]
  - DYSKINESIA [None]
  - CONSTIPATION [None]
